FAERS Safety Report 9229018 (Version 3)
Quarter: 2013Q2

REPORT INFORMATION
  Report Type: Spontaneous
  Country: ES (occurrence: ES)
  Receive Date: 20130412
  Receipt Date: 20130430
  Transmission Date: 20140414
  Serious: Yes (Life-Threatening, Hospitalization, Other)
  Sender: FDA-Public Use
  Company Number: ES-VERTEX PHARMACEUTICALS INC.-2013-004845

PATIENT
  Age: 47 Year
  Sex: Male
  Weight: 85 kg

DRUGS (13)
  1. INCIVO [Suspect]
     Indication: HEPATITIS C
     Dosage: 750 MG, TID
     Route: 048
     Dates: start: 20130208, end: 20130329
  2. RIBAVIRIN [Suspect]
     Indication: HEPATITIS C
     Dosage: DOSAGE FORM: UNSPECIFIED
     Route: 048
     Dates: start: 20130208
  3. RIBAVIRIN [Suspect]
     Dosage: DOSAGE FORM: UNSPECIFIED
     Route: 048
     Dates: end: 20130329
  4. RIBAVIRIN [Suspect]
     Dosage: DOSAGE FORM: UNSPECIFIED
     Route: 048
  5. PEGINTERFERON ALFA [Suspect]
     Indication: HEPATITIS C
     Dosage: 100 MG, QD
     Route: 048
     Dates: start: 20120507
  6. PEGINTERFERON ALFA [Suspect]
     Dosage: DOSAGE FORM: UNSPECIFIED
     Route: 048
  7. PEGINTERFERON ALFA [Suspect]
     Dosage: DOSAGE FORM: UNSPECIFIED
     Route: 048
     Dates: start: 20130208, end: 20130329
  8. LACTULOSA [Concomitant]
     Indication: CONSTIPATION
     Dosage: DOSAGE FORM: UNSPECIFIED
     Route: 048
     Dates: start: 2012
  9. LACTULOSA [Concomitant]
     Indication: PROPHYLAXIS
  10. MACROGOL [Concomitant]
     Indication: PORTAL HYPERTENSION
     Dosage: DOSAGE FORM: UNSPECIFIED
     Route: 048
     Dates: start: 2012
  11. MACROGOL [Concomitant]
     Indication: PROPHYLAXIS
  12. PLANTAGO OVATA LEAF [Concomitant]
     Indication: CONSTIPATION
     Dosage: DOSAGE FORM: UNSPECIFIED
     Route: 048
     Dates: start: 2012
  13. PLANTAGO OVATA LEAF [Concomitant]
     Indication: PROPHYLAXIS

REACTIONS (26)
  - Infectious thyroiditis [Unknown]
  - Leukopenia [Unknown]
  - Goitre [Unknown]
  - Staphylococcal infection [Recovered/Resolved]
  - Renal impairment [Unknown]
  - Rales [Unknown]
  - Bacterial test positive [Recovered/Resolved]
  - Jaundice [Unknown]
  - Anaemia [Unknown]
  - Haemoptysis [Unknown]
  - Dyspnoea [Unknown]
  - Orthopnoea [Unknown]
  - Oedema [Unknown]
  - Odynophagia [Unknown]
  - Tachycardia [Unknown]
  - Hypoventilation [Unknown]
  - Dry skin [Unknown]
  - Dermatitis allergic [Recovered/Resolved]
  - Skin lesion [Recovered/Resolved]
  - Myalgia [Unknown]
  - Pyrexia [Unknown]
  - Dry mouth [Unknown]
  - Tremor [Unknown]
  - Malaise [Unknown]
  - Generalised erythema [Recovered/Resolved]
  - Pruritus generalised [Unknown]
